FAERS Safety Report 5079606-5 (Version None)
Quarter: 2006Q3

REPORT INFORMATION
  Report Type: 
  Country: None (occurrence: None)
  Receive Date: 20060808
  Receipt Date: 20060718
  Transmission Date: 20061208
  Serious: Yes (Hospitalization, Other)
  Sender: FDA-Public Use
  Company Number: US200607003333

PATIENT
  Sex: Female

DRUGS (3)
  1. FORTEO [Suspect]
     Indication: OSTEOPOROSIS
     Dates: start: 20060601
  2. FORTEO [Concomitant]
  3. FENTANYL [Concomitant]

REACTIONS (8)
  - BLOOD DISORDER [None]
  - FALL [None]
  - INFECTION [None]
  - KIDNEY INFECTION [None]
  - LOSS OF CONSCIOUSNESS [None]
  - MEMORY IMPAIRMENT [None]
  - PHARMACEUTICAL PRODUCT COMPLAINT [None]
  - URINARY TRACT INFECTION [None]
